FAERS Safety Report 7708549-0 (Version None)
Quarter: 2011Q3

REPORT INFORMATION
  Report Type: 
  Country: None (occurrence: None)
  Receive Date: 20110825
  Receipt Date: 20110810
  Transmission Date: 20111222
  Serious: Yes (Hospitalization, Other)
  Sender: FDA-Public Use
  Company Number: DE-UCBSA-034371

PATIENT
  Sex: Female

DRUGS (14)
  1. LEVOTHYROXINE SODIUM [Concomitant]
     Dosage: 100MCG; 1-0-0
  2. METHOTREXATE [Concomitant]
     Dosage: DOSE INCREASED FROM 12.5 TO 15MG/WEEK (THURSDAYS)
     Route: 048
  3. ISOPROLOL [Concomitant]
     Dosage: 5MG; 0.5-0-0.5
  4. FOLIC ACID 5MG [Concomitant]
     Dosage: 5MG
  5. OMEPRAZOL 20MG [Concomitant]
     Dosage: 20MG; 1-0-0
  6. MIRTAZAPINE [Concomitant]
     Dosage: 15MG; 0-0-1
  7. PREDNISONE [Concomitant]
     Dosage: 7MG 0-0-1
  8. MORPHINE [Concomitant]
     Dosage: 120MG; 30MG 1-1-1-1
  9. METHOTREXATE [Concomitant]
     Dosage: 7.5MG ON THURSDAYS
  10. CIMZIA [Suspect]
     Indication: SPONDYLITIS
     Route: 058
     Dates: start: 20110101, end: 20110401
  11. ERGOCALCIFEROL [Concomitant]
     Dosage: 1000IE; 0-1-0
  12. METHOTREXATE [Concomitant]
     Dosage: 12.5MG
     Route: 048
     Dates: start: 20040701
  13. AZULFIDINE [Concomitant]
  14. SULFASALAZINE [Concomitant]

REACTIONS (2)
  - THROMBOSIS [None]
  - SPONDYLOARTHROPATHY [None]
